FAERS Safety Report 4599262-X (Version None)
Quarter: 2005Q1

REPORT INFORMATION
  Report Type: 
  Country: None (occurrence: None)
  Receive Date: 20050302
  Receipt Date: 20050302
  Transmission Date: 20050727
  Serious: No
  Sender: FDA-Public Use
  Company Number: None

PATIENT
  Sex: Female
  Weight: 68.0396 kg

DRUGS (1)
  1. DEPO-PROVERA [Suspect]
     Dosage: 1 PER 3 MONTHS  INTRAMUSCULAR
     Route: 030
     Dates: start: 19980814, end: 19990217

REACTIONS (2)
  - NEPHROLITHIASIS [None]
  - URETERIC OBSTRUCTION [None]
